FAERS Safety Report 4759494-4 (Version None)
Quarter: 2005Q3

REPORT INFORMATION
  Report Type: 
  Country: None (occurrence: None)
  Receive Date: 20050831
  Receipt Date: 20050819
  Transmission Date: 20060218
  Serious: Yes (Other)
  Sender: FDA-Public Use
  Company Number: 2005118312

PATIENT
  Age: 61 Year
  Sex: Female
  Weight: 52.1637 kg

DRUGS (2)
  1. CALAN [Suspect]
     Indication: MIGRAINE
     Dates: start: 20050801, end: 20050819
  2. TYLENOL [Suspect]
     Indication: ILL-DEFINED DISORDER
     Dates: start: 20050801, end: 20050819

REACTIONS (1)
  - HEPATITIS [None]
